FAERS Safety Report 18377964 (Version 1)
Quarter: 2020Q4

REPORT INFORMATION
  Report Type: Spontaneous
  Country: DE (occurrence: DE)
  Receive Date: 20201013
  Receipt Date: 20201013
  Transmission Date: 20210114
  Serious: Yes (Life-Threatening, Hospitalization, Other)
  Sender: FDA-Public Use
  Company Number: DE-PFIZER INC-2020212304

PATIENT
  Age: 91 Year
  Sex: Male

DRUGS (5)
  1. FENTANYL. [Interacting]
     Active Substance: FENTANYL
     Dosage: 1 DF, DAILY(100 ?G / H APPLICATION FOR A LONG TIME)
     Route: 062
  2. PREGABALIN. [Suspect]
     Active Substance: PREGABALIN
     Dosage: 300 MG, 1X/DAY (USE FOR A LONG TIME)
     Route: 048
  3. DIPHENHYDRAMIN [Interacting]
     Active Substance: DIPHENHYDRAMINE
     Indication: SELF-MEDICATION
  4. VALPROAT [Interacting]
     Active Substance: VALPROATE SODIUM
     Indication: EPILEPSY
     Dosage: 1000 MG, DAILY
     Route: 048
     Dates: start: 20200510
  5. DIPHENHYDRAMIN [Interacting]
     Active Substance: DIPHENHYDRAMINE
     Indication: SLEEP DISORDER
     Dosage: 50 MG, DAILY
     Route: 048
     Dates: start: 20200514

REACTIONS (4)
  - Depressed level of consciousness [Not Recovered/Not Resolved]
  - Respiratory depression [Not Recovered/Not Resolved]
  - Drug interaction [Unknown]
  - Altered state of consciousness [Not Recovered/Not Resolved]

NARRATIVE: CASE EVENT DATE: 20200515
